FAERS Safety Report 4316026-2 (Version None)
Quarter: 2004Q1

REPORT INFORMATION
  Report Type: 
  Country: None (occurrence: None)
  Receive Date: 20040311
  Receipt Date: 20040305
  Transmission Date: 20041129
  Serious: Yes (Hospitalization)
  Sender: FDA-Public Use
  Company Number: WAES 0403FRA00026

PATIENT
  Age: 77 Year
  Sex: Female

DRUGS (5)
  1. DIACEREIN [Concomitant]
     Indication: OSTEOARTHRITIS
     Route: 048
  2. FLUVASTATIN SODIUM [Concomitant]
     Indication: HYPERCHOLESTEROLAEMIA
     Route: 048
  3. HEPTAMINOL ADENYLATE [Concomitant]
     Indication: VENOUS INSUFFICIENCY
     Route: 048
  4. INDAPAMIDE [Concomitant]
     Indication: HYPERTENSION
     Route: 048
  5. VIOXX [Suspect]
     Indication: LOCALISED OSTEOARTHRITIS
     Route: 048
     Dates: start: 20040224, end: 20040227

REACTIONS (2)
  - CHEST PAIN [None]
  - FACE OEDEMA [None]
